FAERS Safety Report 15694672 (Version 1)
Quarter: 2018Q4

REPORT INFORMATION
  Report Type: Spontaneous
  Country: CN (occurrence: CN)
  Receive Date: 20181206
  Receipt Date: 20181206
  Transmission Date: 20190205
  Serious: Yes (Hospitalization, Other)
  Sender: FDA-Public Use
  Company Number: CN-PFIZER INC-2018493013

PATIENT
  Age: 77 Year
  Sex: Male
  Weight: 64 kg

DRUGS (2)
  1. DANAZOL. [Suspect]
     Active Substance: DANAZOL
     Indication: THERAPEUTIC PROCEDURE
     Dosage: 0.2 G, 2X/DAY
     Route: 048
     Dates: start: 20181011, end: 20181018
  2. DIFLUCAN [Suspect]
     Active Substance: FLUCONAZOLE
     Indication: THERAPEUTIC PROCEDURE
     Dosage: 100 MG, 1X/DAY
     Route: 048
     Dates: start: 20181010, end: 20181018

REACTIONS (6)
  - Ecchymosis [Unknown]
  - Fatigue [Unknown]
  - Condition aggravated [Unknown]
  - Drug-induced liver injury [Unknown]
  - Petechiae [Unknown]
  - Asthenia [Unknown]

NARRATIVE: CASE EVENT DATE: 20181017
